FAERS Safety Report 6140029-9 (Version None)
Quarter: 2009Q2

REPORT INFORMATION
  Report Type: 
  Country: None (occurrence: None)
  Receive Date: 20090401
  Receipt Date: 20090323
  Transmission Date: 20091009
  Serious: Yes (Hospitalization)
  Sender: FDA-Public Use
  Company Number: DE-JNJFOC-20090201242

PATIENT
  Sex: Female
  Weight: 52 kg

DRUGS (1)
  1. IMODIUM AD [Suspect]
     Indication: DIARRHOEA
     Route: 048

REACTIONS (1)
  - URTICARIA [None]
